FAERS Safety Report 20674058 (Version 1)
Quarter: 2022Q2

REPORT INFORMATION
  Report Type: Spontaneous
  Country: US (occurrence: US)
  Receive Date: 20220405
  Receipt Date: 20220405
  Transmission Date: 20220721
  Serious: Yes (Other)
  Sender: FDA-Public Use
  Company Number: US-drreddys-LIT/USA/22/0148272

PATIENT
  Age: 58 Year
  Sex: Male

DRUGS (11)
  1. BORTEZOMIB [Suspect]
     Active Substance: BORTEZOMIB
     Indication: Plasma cell leukaemia
     Dosage: 4 CYCLES OF CYCLOPHOSPHAMIDE, BORTEZOMIB, DEXAMETHASONE (CYBORD REGIMEN)
  2. BORTEZOMIB [Suspect]
     Active Substance: BORTEZOMIB
     Dosage: VTD-PACE REGIMEN
  3. DEXAMETHASONE SODIUM PHOSPHATE [Suspect]
     Active Substance: DEXAMETHASONE SODIUM PHOSPHATE
     Indication: Plasma cell leukaemia
     Dosage: 4 CYCLES OF CYCLOPHOSPHAMIDE, BORTEZOMIB, DEXAMETHASONE (CYBORD REGIMEN)
  4. DEXAMETHASONE SODIUM PHOSPHATE [Suspect]
     Active Substance: DEXAMETHASONE SODIUM PHOSPHATE
     Dosage: VTD-PACE REGIMEN
  5. DOXORUBICIN HYDROCHLORIDE [Suspect]
     Active Substance: DOXORUBICIN HYDROCHLORIDE
     Indication: Plasma cell leukaemia
     Dosage: VTD-PACE REGIMEN
  6. MELPHALAN HYDROCHLORIDE [Suspect]
     Active Substance: MELPHALAN HYDROCHLORIDE
     Indication: Plasma cell leukaemia
     Dosage: CONDITIONING REGIMEN OF STANDARD HIGH DOSE
  7. CYCLOPHOSPHAMIDE [Suspect]
     Active Substance: CYCLOPHOSPHAMIDE
     Indication: Plasma cell leukaemia
     Dosage: 4 CYCLES OF CYCLOPHOSPHAMIDE, BORTEZOMIB, DEXAMETHASONE (CYBORD REGIMEN)
  8. CYCLOPHOSPHAMIDE [Suspect]
     Active Substance: CYCLOPHOSPHAMIDE
     Dosage: VTD-PACE REGIMEN
  9. THALIDOMIDE [Suspect]
     Active Substance: THALIDOMIDE
     Indication: Plasma cell leukaemia
     Dosage: VTD-PACE REGIMEN
  10. CISPLATIN [Suspect]
     Active Substance: CISPLATIN
     Indication: Plasma cell leukaemia
     Dosage: VTD-PACE REGIMEN
  11. ETOPOSIDE [Suspect]
     Active Substance: ETOPOSIDE
     Indication: Plasma cell leukaemia
     Dosage: VTD-PACE REGIMEN

REACTIONS (5)
  - Mucosal inflammation [Recovered/Resolved]
  - Therapy partial responder [Recovered/Resolved]
  - Appendicitis [Recovered/Resolved]
  - Febrile neutropenia [Recovered/Resolved]
  - Abdominal pain [Recovered/Resolved]
